FAERS Safety Report 12817077 (Version 2)
Quarter: 2016Q4

REPORT INFORMATION
  Report Type: Spontaneous
  Country: IT (occurrence: IT)
  Receive Date: 20161006
  Receipt Date: 20161020
  Transmission Date: 20170207
  Serious: Yes (Hospitalization)
  Sender: FDA-Public Use
  Company Number: IT-ROCHE-1837984

PATIENT
  Age: 44 Year
  Sex: Male

DRUGS (4)
  1. VALIUM [Suspect]
     Active Substance: DIAZEPAM
     Indication: ANXIETY
     Route: 048
  2. PRAZENE [Suspect]
     Active Substance: PRAZEPAM
     Indication: ANXIETY
     Dosage: 15 MG/ML - 1 BOTTLE CONTAINING 20 ML
     Route: 048
  3. TALOFEN [Suspect]
     Active Substance: PROMAZINE HYDROCHLORIDE
     Indication: DEPRESSION
     Dosage: 4 G/100 ML -CONTAINING 30 ML
     Route: 048
  4. METHADONE HYDROCHLORIDE. [Concomitant]
     Active Substance: METHADONE HYDROCHLORIDE

REACTIONS (4)
  - Drug abuse [Unknown]
  - Somnolence [Recovering/Resolving]
  - Agitation [Recovering/Resolving]
  - Suicide attempt [Unknown]

NARRATIVE: CASE EVENT DATE: 20160925
